FAERS Safety Report 12893140 (Version 1)
Quarter: 2016Q4

REPORT INFORMATION
  Report Type: Spontaneous
  Country: US (occurrence: US)
  Receive Date: 20161028
  Receipt Date: 20161028
  Transmission Date: 20170207
  Serious: Yes (Hospitalization)
  Sender: FDA-Public Use
  Company Number: US-PFIZER INC-2016499356

PATIENT
  Age: 51 Year
  Sex: Female

DRUGS (1)
  1. PHENELZINE SULFATE. [Suspect]
     Active Substance: PHENELZINE SULFATE
     Indication: MENTAL DISORDER
     Dosage: UNKNOWN DOSE

REACTIONS (5)
  - Blindness [Recovered/Resolved]
  - Food interaction [Unknown]
  - Deafness [Recovered/Resolved]
  - Motor dysfunction [Recovered/Resolved]
  - Malaise [Not Recovered/Not Resolved]

NARRATIVE: CASE EVENT DATE: 201610
